FAERS Safety Report 14331292 (Version 1)
Quarter: 2017Q4

REPORT INFORMATION
  Report Type: Spontaneous
  Country: US (occurrence: US)
  Receive Date: 20171228
  Receipt Date: 20171228
  Transmission Date: 20180321
  Serious: Yes (Death, Other)
  Sender: FDA-Public Use
  Company Number: US-ASTRAZENECA-2017SF30372

PATIENT
  Age: 87 Year
  Sex: Male
  Weight: 52 kg

DRUGS (26)
  1. LUPRON [Suspect]
     Active Substance: LEUPROLIDE ACETATE
     Indication: METASTASIS
     Route: 065
     Dates: start: 20171005
  2. XTANDI [Suspect]
     Active Substance: ENZALUTAMIDE
     Indication: HORMONE-REFRACTORY PROSTATE CANCER
     Route: 048
     Dates: start: 20160401
  3. VITAMIN C [Concomitant]
     Active Substance: ASCORBIC ACID
  4. LUPRON [Suspect]
     Active Substance: LEUPROLIDE ACETATE
     Indication: METASTASIS
     Route: 065
     Dates: start: 20160401
  5. LUPRON [Suspect]
     Active Substance: LEUPROLIDE ACETATE
     Indication: HORMONE-REFRACTORY PROSTATE CANCER
     Route: 065
     Dates: start: 20160802
  6. XTANDI [Suspect]
     Active Substance: ENZALUTAMIDE
     Indication: METASTASIS
     Route: 048
     Dates: start: 20160401
  7. LISINOPRIL. [Suspect]
     Active Substance: LISINOPRIL
     Route: 048
  8. LUPRON [Suspect]
     Active Substance: LEUPROLIDE ACETATE
     Indication: HORMONE-REFRACTORY PROSTATE CANCER
     Route: 065
     Dates: start: 20150724
  9. LUPRON [Suspect]
     Active Substance: LEUPROLIDE ACETATE
     Indication: HORMONE-REFRACTORY PROSTATE CANCER
     Route: 065
     Dates: start: 20160401
  10. LUPRON [Suspect]
     Active Substance: LEUPROLIDE ACETATE
     Indication: HORMONE-REFRACTORY PROSTATE CANCER
     Route: 065
     Dates: start: 20171005
  11. XTANDI [Suspect]
     Active Substance: ENZALUTAMIDE
     Indication: HORMONE-REFRACTORY PROSTATE CANCER
     Route: 048
     Dates: start: 20160705, end: 20171005
  12. MUPIROCIN. [Concomitant]
     Active Substance: MUPIROCIN
  13. THYROID [Concomitant]
     Active Substance: LEVOTHYROXINE\LIOTHYRONINE
  14. CASODEX [Suspect]
     Active Substance: BICALUTAMIDE
     Indication: PROSTATE CANCER
     Route: 048
     Dates: start: 20150724, end: 20151210
  15. LUPRON [Suspect]
     Active Substance: LEUPROLIDE ACETATE
     Indication: HORMONE-REFRACTORY PROSTATE CANCER
     Route: 065
     Dates: start: 20151125
  16. SSD [Concomitant]
     Active Substance: SILVER SULFADIAZINE
  17. LUPRON [Suspect]
     Active Substance: LEUPROLIDE ACETATE
     Indication: METASTASIS
     Route: 065
     Dates: start: 20150724
  18. FERROUS SULFATE. [Concomitant]
     Active Substance: FERROUS SULFATE
  19. LUPRON [Suspect]
     Active Substance: LEUPROLIDE ACETATE
     Indication: METASTASIS
     Route: 065
     Dates: start: 20151125
  20. LUPRON [Suspect]
     Active Substance: LEUPROLIDE ACETATE
     Indication: METASTASIS
     Route: 065
     Dates: start: 20161206
  21. LUPRON [Suspect]
     Active Substance: LEUPROLIDE ACETATE
     Indication: HORMONE-REFRACTORY PROSTATE CANCER
     Route: 065
     Dates: start: 20161206
  22. LUPRON [Suspect]
     Active Substance: LEUPROLIDE ACETATE
     Indication: HORMONE-REFRACTORY PROSTATE CANCER
     Route: 065
     Dates: start: 20170411
  23. PROCET [Concomitant]
     Active Substance: ACETAMINOPHEN\HYDROCODONE BITARTRATE
  24. LUPRON [Suspect]
     Active Substance: LEUPROLIDE ACETATE
     Indication: METASTASIS
     Route: 065
     Dates: start: 20160802
  25. LUPRON [Suspect]
     Active Substance: LEUPROLIDE ACETATE
     Indication: METASTASIS
     Route: 065
     Dates: start: 20170411
  26. XTANDI [Suspect]
     Active Substance: ENZALUTAMIDE
     Indication: METASTASIS
     Route: 048
     Dates: start: 20160705, end: 20171005

REACTIONS (8)
  - Drug hypersensitivity [Unknown]
  - Fatigue [Unknown]
  - Malaise [Unknown]
  - Back pain [Not Recovered/Not Resolved]
  - Hypophagia [Unknown]
  - Feeling abnormal [Not Recovered/Not Resolved]
  - Squamous cell carcinoma of head and neck [Fatal]
  - Malignant neoplasm progression [Not Recovered/Not Resolved]

NARRATIVE: CASE EVENT DATE: 2015
